FAERS Safety Report 19917436 (Version 1)
Quarter: 2021Q4

REPORT INFORMATION
  Report Type: Spontaneous
  Country: US (occurrence: US)
  Receive Date: 20211004
  Receipt Date: 20211004
  Transmission Date: 20220303
  Serious: No
  Sender: FDA-Public Use
  Company Number: US-OTSUKA-2021_023912

PATIENT
  Sex: Male

DRUGS (2)
  1. ABILIFY [Suspect]
     Active Substance: ARIPIPRAZOLE
     Indication: Attention deficit hyperactivity disorder
     Dosage: UNK
     Route: 065
  2. CLONIDINE [Concomitant]
     Active Substance: CLONIDINE
     Indication: Impulse-control disorder
     Dosage: .1 MG
     Route: 065

REACTIONS (3)
  - Product prescribing error [Unknown]
  - Insurance issue [Unknown]
  - Inability to afford medication [Unknown]
